FAERS Safety Report 12484550 (Version 3)
Quarter: 2016Q4

REPORT INFORMATION
  Report Type: Spontaneous
  Country: BR (occurrence: BR)
  Receive Date: 20160621
  Receipt Date: 20161013
  Transmission Date: 20170207
  Serious: Yes (Hospitalization, Other)
  Sender: FDA-Public Use
  Company Number: BR-PFIZER INC-2016293241

PATIENT
  Age: 14 Year
  Sex: Female

DRUGS (1)
  1. TALIGLUCERASE ALFA [Suspect]
     Active Substance: TALIGLUCERASE ALFA
     Indication: GAUCHER^S DISEASE
     Dosage: 70 IU/KG, EVERY 15 DAYS
     Dates: start: 2009

REACTIONS (10)
  - Arthralgia [Unknown]
  - Somnolence [Unknown]
  - Condition aggravated [Unknown]
  - Back pain [Unknown]
  - Pain in extremity [Unknown]
  - Acute lymphocytic leukaemia [Unknown]
  - Chest pain [Unknown]
  - Seizure like phenomena [Unknown]
  - Bone disorder [Unknown]
  - Product use issue [Unknown]

NARRATIVE: CASE EVENT DATE: 20160503
